FAERS Safety Report 16478955 (Version 1)
Quarter: 2019Q2

REPORT INFORMATION
  Report Type: Spontaneous
  Country: AU (occurrence: AU)
  Receive Date: 20190626
  Receipt Date: 20190626
  Transmission Date: 20190711
  Serious: Yes (Hospitalization, Other)
  Sender: FDA-Public Use
  Company Number: AU-PFIZER INC-2019267558

PATIENT
  Age: 44 Year
  Sex: Male

DRUGS (6)
  1. FLUCLOXACILLIN [Suspect]
     Active Substance: FLUCLOXACILLIN
     Indication: EVIDENCE BASED TREATMENT
     Dosage: UNK, (INJECTION)
     Route: 042
  2. VANCOMYCIN HCL [Suspect]
     Active Substance: VANCOMYCIN HYDROCHLORIDE
     Indication: STAPHYLOCOCCAL INFECTION
  3. FLUCLOXACILLIN [Suspect]
     Active Substance: FLUCLOXACILLIN
     Indication: STAPHYLOCOCCAL INFECTION
  4. PIPERACILLIN/TAZOBACTAM [Suspect]
     Active Substance: PIPERACILLIN SODIUM\TAZOBACTAM SODIUM
     Indication: EVIDENCE BASED TREATMENT
     Dosage: UNK, (INJECTION)
     Route: 042
  5. PIPERACILLIN/TAZOBACTAM [Suspect]
     Active Substance: PIPERACILLIN SODIUM\TAZOBACTAM SODIUM
     Indication: STAPHYLOCOCCAL INFECTION
  6. VANCOMYCIN HCL [Suspect]
     Active Substance: VANCOMYCIN HYDROCHLORIDE
     Indication: EVIDENCE BASED TREATMENT
     Dosage: UNK, (INJECTION)
     Route: 042

REACTIONS (2)
  - Renal tubular necrosis [Recovered/Resolved]
  - Tubulointerstitial nephritis [Recovered/Resolved]
